FAERS Safety Report 6426320-7 (Version None)
Quarter: 2009Q4

REPORT INFORMATION
  Report Type: 
  Country: None (occurrence: None)
  Receive Date: 20091103
  Receipt Date: 20091103
  Transmission Date: 20100525
  Serious: Yes (Hospitalization)
  Sender: FDA-Public Use
  Company Number: None

PATIENT
  Age: 39 Year
  Sex: Male
  Weight: 97.5 kg

DRUGS (1)
  1. TRIMETHOPRIM-SULFAMETHOXAZOLE [Suspect]
     Indication: CELLULITIS
     Dosage: 1 TAB BID PO
     Route: 048
     Dates: start: 20081008, end: 20081010

REACTIONS (1)
  - ANGIOEDEMA [None]
